FAERS Safety Report 21837856 (Version 1)
Quarter: 2023Q1

REPORT INFORMATION
  Report Type: Spontaneous
  Country: FR (occurrence: FR)
  Receive Date: 20230109
  Receipt Date: 20230109
  Transmission Date: 20230417
  Serious: Yes (Hospitalization)
  Sender: FDA-Public Use
  Company Number: None

PATIENT
  Age: 36 Year
  Sex: Female

DRUGS (1)
  1. ROPIVACAINE HYDROCHLORIDE [Suspect]
     Active Substance: ROPIVACAINE HYDROCHLORIDE
     Indication: Delivery
     Route: 008
     Dates: start: 20221208

REACTIONS (2)
  - Toxicity to various agents [Recovered/Resolved]
  - Local anaesthetic systemic toxicity [Recovered/Resolved]

NARRATIVE: CASE EVENT DATE: 20221208
